FAERS Safety Report 8054844-8 (Version None)
Quarter: 2012Q1

REPORT INFORMATION
  Report Type: 
  Country: None (occurrence: None)
  Receive Date: 20120119
  Receipt Date: 20120113
  Transmission Date: 20120608
  Serious: Yes (Hospitalization)
  Sender: FDA-Public Use
  Company Number: US-JNJFOC-20111108942

PATIENT
  Sex: Male

DRUGS (3)
  1. METHOTREXATE [Concomitant]
     Indication: PSORIATIC ARTHROPATHY
     Route: 065
  2. FOLIC ACID [Concomitant]
     Indication: PSORIATIC ARTHROPATHY
     Route: 065
  3. REMICADE [Suspect]
     Indication: PSORIATIC ARTHROPATHY
     Route: 042
     Dates: start: 20070101, end: 20111101

REACTIONS (1)
  - MYOCARDIAL INFARCTION [None]
